FAERS Safety Report 24793111 (Version 1)
Quarter: 2024Q4

REPORT INFORMATION
  Report Type: Spontaneous
  Country: ES (occurrence: ES)
  Receive Date: 20241231
  Receipt Date: 20241231
  Transmission Date: 20250115
  Serious: Yes (Other)
  Sender: SUNOVION
  Company Number: None

PATIENT

DRUGS (1)
  1. ESTRADIOL\NORETHINDRONE ACETATE\RELUGOLIX [Suspect]
     Active Substance: ESTRADIOL\NORETHINDRONE ACETATE\RELUGOLIX
     Indication: Menometrorrhagia
     Dosage: 40 MG, QD
     Route: 048
     Dates: start: 20240501, end: 20241208

REACTIONS (2)
  - Major depression [Unknown]
  - Alopecia [Unknown]

NARRATIVE: CASE EVENT DATE: 20240520
